FAERS Safety Report 6461089-1 (Version None)
Quarter: 2009Q4

REPORT INFORMATION
  Report Type: 
  Country: None (occurrence: None)
  Receive Date: 20091130
  Receipt Date: 20091120
  Transmission Date: 20100525
  Serious: Yes (Hospitalization)
  Sender: FDA-Public Use
  Company Number: B0607829A

PATIENT
  Age: 82 Year
  Sex: Male

DRUGS (2)
  1. FLUTIDE DISKUS [Suspect]
     Indication: ASTHMA
     Dosage: 100MCG TWICE PER DAY
     Route: 055
  2. SEREVENT [Concomitant]
     Indication: ASTHMA
     Route: 055

REACTIONS (1)
  - PULMONARY MYCOSIS [None]
